FAERS Safety Report 6053344-4 (Version None)
Quarter: 2009Q1

REPORT INFORMATION
  Report Type: 
  Country: None (occurrence: None)
  Receive Date: 20090127
  Receipt Date: 20090126
  Transmission Date: 20090719
  Serious: Yes (Death, Hospitalization)
  Sender: FDA-Public Use
  Company Number: D0059701A

PATIENT
  Age: 70 Year
  Sex: Male
  Weight: 70 kg

DRUGS (10)
  1. HYCAMTIN [Suspect]
     Dosage: 1.25MGM2 PER DAY
     Route: 042
     Dates: start: 20081110, end: 20081114
  2. FORTECORTIN [Concomitant]
     Indication: VOMITING
     Dosage: 8MG PER DAY
     Route: 042
     Dates: start: 20081110, end: 20081115
  3. ZOFRAN [Concomitant]
     Indication: VOMITING
     Dosage: 8MG PER DAY
     Route: 042
     Dates: start: 20081110, end: 20081115
  4. EUGLUCON [Concomitant]
     Dosage: 3.5MG PER DAY
     Route: 065
  5. METFORMIN HCL [Concomitant]
     Dosage: 1500MG PER DAY
     Route: 065
  6. OLMESARTAN MEDOXOMIL [Concomitant]
     Dosage: 20MG PER DAY
     Route: 065
  7. CARMEN [Concomitant]
     Dosage: 20MG PER DAY
     Route: 065
  8. METOPROLOL SUCCINATE [Concomitant]
     Route: 065
  9. KALINOR [Concomitant]
  10. NOVALGIN [Concomitant]
     Route: 065

REACTIONS (6)
  - CARDIAC ARREST [None]
  - FEBRILE NEUTROPENIA [None]
  - HYPOGLYCAEMIA [None]
  - HYPOKALAEMIA [None]
  - LEUKOPENIA [None]
  - THROMBOCYTOPENIA [None]
